FAERS Safety Report 13230083 (Version 1)
Quarter: 2017Q1

REPORT INFORMATION
  Report Type: Spontaneous
  Country: US (occurrence: US)
  Receive Date: 20170213
  Receipt Date: 20170213
  Transmission Date: 20170428
  Serious: Yes (Disabling)
  Sender: FDA-Public Use
  Company Number: None

PATIENT
  Age: 36 Year
  Sex: Male
  Weight: 90 kg

DRUGS (5)
  1. OMEPROZOLE [Concomitant]
     Active Substance: OMEPRAZOLE
  2. MELATONIN [Concomitant]
     Active Substance: MELATONIN
  3. LAMOTRIGINE 200MG [Suspect]
     Active Substance: LAMOTRIGINE
     Indication: AFFECTIVE DISORDER
     Dosage: ?          QUANTITY:30 TABLET(S);?
     Route: 048
  4. AMBIEN [Concomitant]
     Active Substance: ZOLPIDEM TARTRATE
  5. PAXIL [Concomitant]
     Active Substance: PAROXETINE HYDROCHLORIDE

REACTIONS (3)
  - Urine abnormality [None]
  - Retrograde ejaculation [None]
  - Testicular pain [None]

NARRATIVE: CASE EVENT DATE: 20161001
